FAERS Safety Report 7799630-9 (Version None)
Quarter: 2011Q4

REPORT INFORMATION
  Report Type: 
  Country: None (occurrence: None)
  Receive Date: 20111006
  Receipt Date: 20110930
  Transmission Date: 20120403
  Serious: Yes (Hospitalization, Disabling)
  Sender: FDA-Public Use
  Company Number: JP-B.I. PHARMACEUTICALS,INC./RIDGEFIELD-2011-BP-16410NB

PATIENT
  Sex: Male
  Weight: 54.8 kg

DRUGS (10)
  1. PRADAXA [Suspect]
     Indication: ATRIAL FIBRILLATION
     Dosage: 220 MG
     Route: 048
     Dates: start: 20110514, end: 20110604
  2. FUROSEMIDE [Concomitant]
     Indication: CARDIAC FAILURE CHRONIC
     Dosage: 20 MG
     Route: 048
  3. ALLOPURINOL [Concomitant]
     Indication: RENAL FAILURE CHRONIC
     Dosage: 100 MG
     Route: 048
  4. LANIRAPID [Concomitant]
     Indication: ATRIAL FIBRILLATION
     Dosage: 0.025 MG
     Route: 048
  5. ASPIRIN [Concomitant]
     Dosage: 100 MG
     Route: 048
  6. MAGMITT [Concomitant]
     Dosage: 660 MG
     Route: 048
  7. URIEF [Concomitant]
     Dosage: 8 MG
     Route: 048
  8. FERRUM [Concomitant]
     Dosage: 100 MG
     Route: 048
  9. LEVOTHYROXINE SODIUM [Concomitant]
     Dosage: 25 MCG
     Route: 048
  10. PROMAC [Concomitant]
     Dosage: 1 G
     Route: 048

REACTIONS (3)
  - ANAEMIA [None]
  - HAEMATURIA [None]
  - PNEUMONIA ASPIRATION [None]
